FAERS Safety Report 15923614 (Version 4)
Quarter: 2020Q1

REPORT INFORMATION
  Report Type: Report from Study
  Country: US (occurrence: US)
  Receive Date: 20190206
  Receipt Date: 20200217
  Transmission Date: 20200409
  Serious: No
  Sender: FDA-Public Use
  Company Number: PHEH2019US005049

PATIENT
  Sex: Female

DRUGS (1)
  1. GILENYA [Suspect]
     Active Substance: FINGOLIMOD HYDROCHLORIDE
     Indication: MULTIPLE SCLEROSIS
     Dosage: 0.5 MG, QD
     Route: 048
     Dates: start: 20180525

REACTIONS (6)
  - Fatigue [Unknown]
  - Headache [Unknown]
  - Blood test abnormal [Unknown]
  - Liver function test increased [Unknown]
  - Muscle disorder [Unknown]
  - Muscle spasms [Unknown]
